FAERS Safety Report 4277895-8 (Version None)
Quarter: 2004Q1

REPORT INFORMATION
  Report Type: 
  Country: None (occurrence: None)
  Receive Date: 20040121
  Receipt Date: 20030305
  Transmission Date: 20041129
  Serious: Yes (Hospitalization, Other)
  Sender: FDA-Public Use
  Company Number: 2003-01-2723

PATIENT
  Age: 47 Year
  Sex: Female
  Weight: 65 kg

DRUGS (2)
  1. SUBUTEX [Suspect]
     Indication: DRUG DEPENDENCE
     Dosage: 32 MG QD
     Route: 060
     Dates: start: 20020701
  2. DOXEPIN HCL [Concomitant]

REACTIONS (7)
  - ARTHRALGIA [None]
  - DEEP VEIN THROMBOSIS [None]
  - HEPATITIS A ANTIBODY POSITIVE [None]
  - HEPATITIS B ANTIBODY POSITIVE [None]
  - HEPATITIS C [None]
  - HEPATOSPLENOMEGALY [None]
  - PULMONARY EMBOLISM [None]
